FAERS Safety Report 24745090 (Version 1)
Quarter: 2024Q4

REPORT INFORMATION
  Report Type: Spontaneous
  Country: FR (occurrence: FR)
  Receive Date: 20241217
  Receipt Date: 20241217
  Transmission Date: 20250115
  Serious: Yes (Other)
  Sender: B BRAUN
  Company Number: FR-B.Braun Medical Inc.-2167297

PATIENT
  Age: 21 Year
  Sex: Male

DRUGS (9)
  1. ACETAMINOPHEN [Suspect]
     Active Substance: ACETAMINOPHEN
     Indication: Pain
  2. KETOPROFEN [Suspect]
     Active Substance: KETOPROFEN
  3. ENOXAPARIN SODIUM [Concomitant]
     Active Substance: ENOXAPARIN SODIUM
  4. DROPERIDOL [Concomitant]
     Active Substance: DROPERIDOL
  5. ONDANSETRON [Concomitant]
     Active Substance: ONDANSETRON
  6. 1,3,5-TRIMETHOXYBENZENE [Suspect]
     Active Substance: 1,3,5-TRIMETHOXYBENZENE
  7. POLYETHYLENE GLYCOLS [Suspect]
     Active Substance: POLYETHYLENE GLYCOLS
  8. NEFOPAM HYDROCHLORIDE [Suspect]
     Active Substance: NEFOPAM HYDROCHLORIDE
  9. MORPHINE [Suspect]
     Active Substance: MORPHINE

REACTIONS (1)
  - Hepatic cytolysis [Recovered/Resolved]
